FAERS Safety Report 8357415-9 (Version None)
Quarter: 2012Q2

REPORT INFORMATION
  Report Type: 
  Country: None (occurrence: None)
  Receive Date: 20120511
  Receipt Date: 20120430
  Transmission Date: 20120825
  Serious: Yes (Other)
  Sender: FDA-Public Use
  Company Number: 2012SP020784

PATIENT
  Age: 51 Year
  Sex: Male
  Weight: 90.6 kg

DRUGS (16)
  1. RIBAVIRIN [Suspect]
     Indication: HEPATITIS C
     Dosage: 600 MG;BID;PO ; 600 MG;BID;PO
     Route: 048
     Dates: start: 20111229, end: 20120118
  2. RIBAVIRIN [Suspect]
     Indication: HEPATITIS C
     Dosage: 600 MG;BID;PO ; 600 MG;BID;PO
     Route: 048
     Dates: start: 20110119, end: 20120313
  3. GS-9451 [Suspect]
     Indication: HEPATITIS C
     Dosage: 2 DF;QD;PO ; 2 DF;QD;PO
     Route: 048
     Dates: start: 20111229, end: 20120118
  4. GS-9451 [Suspect]
     Indication: HEPATITIS C
     Dosage: 2 DF;QD;PO ; 2 DF;QD;PO
     Route: 048
     Dates: start: 20120119, end: 20120313
  5. METOPROLOL TARTRATE [Concomitant]
  6. ASPIRIN [Concomitant]
  7. TYLENOL (CAPLET) [Concomitant]
  8. SULINDAC [Concomitant]
  9. RANITIDINE [Concomitant]
  10. CODEINE SULFATE [Concomitant]
  11. PEGINTERFERON ALFA-2A [Suspect]
     Indication: HEPATITIS C
     Dosage: 180 MCG;QW;SC
     Route: 058
     Dates: start: 20120119, end: 20120309
  12. CELEXA [Concomitant]
  13. ZITHROMAX [Concomitant]
  14. GS-5885 [Suspect]
     Indication: HEPATITIS C
     Dosage: 3 DF;QD;PO ; 3 DF;QD;PO
     Route: 048
     Dates: start: 20120119, end: 20120313
  15. GS-5885 [Suspect]
     Indication: HEPATITIS C
     Dosage: 3 DF;QD;PO ; 3 DF;QD;PO
     Route: 048
     Dates: start: 20111229, end: 20120118
  16. PLACEBO [Suspect]
     Indication: HEPATITIS C
     Dosage: 1 DF;BID;PO
     Route: 048
     Dates: start: 20111229, end: 20120118

REACTIONS (23)
  - DERMATITIS ALLERGIC [None]
  - MUSCULAR WEAKNESS [None]
  - NEPHROLITHIASIS [None]
  - RASH PAPULAR [None]
  - GAIT DISTURBANCE [None]
  - RASH PRURITIC [None]
  - EAR INFECTION STAPHYLOCOCCAL [None]
  - PARAESTHESIA [None]
  - PERONEAL NERVE PALSY [None]
  - ORAL MUCOSA EROSION [None]
  - SKIN LESION [None]
  - EXFOLIATIVE RASH [None]
  - SCAB [None]
  - MOTOR DYSFUNCTION [None]
  - FALL [None]
  - POLYNEUROPATHY [None]
  - DRUG EFFECT DECREASED [None]
  - SKIN OEDEMA [None]
  - EXCORIATION [None]
  - OTORRHOEA [None]
  - DEMYELINATION [None]
  - PERIPHERAL SENSORY NEUROPATHY [None]
  - JOINT EFFUSION [None]
